FAERS Safety Report 15060496 (Version 1)
Quarter: 2018Q2

REPORT INFORMATION
  Report Type: Spontaneous
  Country: US (occurrence: US)
  Receive Date: 20180625
  Receipt Date: 20180625
  Transmission Date: 20180711
  Serious: Yes (Other)
  Sender: FDA-Public Use
  Company Number: US-JNJFOC-20180622861

PATIENT
  Sex: Female

DRUGS (2)
  1. TYLENOL [Suspect]
     Active Substance: ACETAMINOPHEN
     Indication: SPINAL OPERATION
     Route: 065
  2. TYLENOL [Suspect]
     Active Substance: ACETAMINOPHEN
     Route: 065

REACTIONS (4)
  - Product use in unapproved indication [Unknown]
  - Hepatic cirrhosis [Unknown]
  - Off label use [Unknown]
  - Toxicity to various agents [Unknown]
